FAERS Safety Report 6299565-7 (Version None)
Quarter: 2009Q3

REPORT INFORMATION
  Report Type: 
  Country: None (occurrence: None)
  Receive Date: 20090806
  Receipt Date: 20090731
  Transmission Date: 20100115
  Serious: Yes (Hospitalization)
  Sender: FDA-Public Use
  Company Number: US-BAYER-200927246GPV

PATIENT
  Age: 69 Year
  Sex: Male
  Weight: 61 kg

DRUGS (6)
  1. SORAFENIB [Suspect]
     Indication: HEPATIC NEOPLASM MALIGNANT
     Route: 048
     Dates: start: 20090625
  2. IRBESARTAN [Concomitant]
     Indication: HYPERTENSION
     Dates: start: 20010101
  3. LERCANIDIPINE [Concomitant]
     Indication: HYPERTENSION
     Dosage: TOTAL DAILY DOSE: 40 MG
     Dates: start: 20010101
  4. PROPRANOLOL [Concomitant]
     Indication: HYPERTENSION
     Dosage: TOTAL DAILY DOSE: 80 MG
     Dates: start: 20010101
  5. DI-ANTALVIC [Concomitant]
     Indication: BONE PAIN
     Dosage: TOTAL DAILY DOSE: 120 MG
     Dates: start: 20071009
  6. ZOLPIDEM [Concomitant]
     Indication: INSOMNIA
     Dates: start: 20090619

REACTIONS (7)
  - ASTHENIA [None]
  - BONE PAIN [None]
  - DEHYDRATION [None]
  - DYSPHAGIA [None]
  - GENERAL PHYSICAL HEALTH DETERIORATION [None]
  - SINUS TACHYCARDIA [None]
  - WEIGHT DECREASED [None]
